FAERS Safety Report 4739905-0 (Version None)
Quarter: 2005Q3

REPORT INFORMATION
  Report Type: 
  Country: None (occurrence: None)
  Receive Date: 20050810
  Receipt Date: 20021216
  Transmission Date: 20060218
  Serious: No
  Sender: FDA-Public Use
  Company Number: US-GLAXOSMITHKLINE-A0389433A

PATIENT
  Age: 50 Year
  Sex: Female
  Weight: 66.8 kg

DRUGS (4)
  1. PAXIL [Suspect]
     Indication: DEPRESSION
     Dosage: 40MG PER DAY
     Route: 048
     Dates: start: 20010101, end: 20020101
  2. PAXIL CR [Suspect]
     Indication: DEPRESSION
     Route: 048
     Dates: start: 20021212
  3. SYNTHROID [Concomitant]
     Indication: HYPOTHYROIDISM
     Dosage: .15MG PER DAY
     Route: 048
  4. ZOCOR [Concomitant]
     Dosage: 20MG TWICE PER DAY
     Route: 048

REACTIONS (4)
  - DISORIENTATION [None]
  - DIZZINESS [None]
  - DRUG WITHDRAWAL SYNDROME [None]
  - NAUSEA [None]
